FAERS Safety Report 8304293-X (Version None)
Quarter: 2012Q2

REPORT INFORMATION
  Report Type: 
  Country: None (occurrence: None)
  Receive Date: 20120423
  Receipt Date: 20120423
  Transmission Date: 20120825
  Serious: Yes (Other)
  Sender: FDA-Public Use
  Company Number: None

PATIENT
  Age: 55 Year
  Sex: Male
  Weight: 79.378 kg

DRUGS (4)
  1. NEURONTIN [Concomitant]
     Indication: RESTLESS LEGS SYNDROME
     Dosage: 300 MG
     Route: 048
     Dates: start: 19990101, end: 20120417
  2. INDOMETACIN/TENDINYL [Concomitant]
  3. INDOMETHACIN [Suspect]
     Indication: PAIN
     Dosage: 25 MG
     Route: 048
     Dates: start: 20120301, end: 20120417
  4. INDOMETHACIN [Suspect]
     Indication: INFLAMMATION
     Dosage: 25 MG
     Route: 048
     Dates: start: 20120301, end: 20120417

REACTIONS (3)
  - MIGRAINE [None]
  - DEPRESSION [None]
  - HEADACHE [None]
